FAERS Safety Report 5351366-X (Version None)
Quarter: 2007Q2

REPORT INFORMATION
  Report Type: 
  Country: None (occurrence: None)
  Receive Date: 20070521
  Receipt Date: 20070416
  Transmission Date: 20071010
  Serious: No
  Sender: FDA-Public Use
  Company Number: WAES 0704USA03729

PATIENT
  Age: 80 Year
  Sex: Female

DRUGS (1)
  1. JANUVIA [Suspect]
     Indication: BLOOD GLUCOSE
     Dosage: PO
     Route: 048

REACTIONS (3)
  - ARTHRALGIA [None]
  - BLOOD GLUCOSE FLUCTUATION [None]
  - FALL [None]
